FAERS Safety Report 16135144 (Version 3)
Quarter: 2019Q2

REPORT INFORMATION
  Report Type: Spontaneous
  Country: DZ (occurrence: DZ)
  Receive Date: 20190329
  Receipt Date: 20190524
  Transmission Date: 20190711
  Serious: Yes (Death, Hospitalization, Other)
  Sender: FDA-Public Use
  Company Number: DZ-JAZZ-2019-DZ-003100

PATIENT
  Age: 47 Year
  Sex: Male

DRUGS (3)
  1. ERWINASE [Suspect]
     Active Substance: ASPARAGINASE ERWINIA CHRYSANTHEMI
     Indication: ACUTE LYMPHOCYTIC LEUKAEMIA
     Dosage: 19000 IU, JUST ONE
     Route: 042
     Dates: start: 20190122, end: 20190122
  2. KIDROLASE [Suspect]
     Active Substance: ASPARAGINASE
     Indication: ACUTE LYMPHOCYTIC LEUKAEMIA
     Dosage: UNK
     Route: 065
     Dates: start: 20181112
  3. METHOTREXATE. [Suspect]
     Active Substance: METHOTREXATE
     Indication: ACUTE LYMPHOCYTIC LEUKAEMIA
     Dosage: 6 G, ONE INJECTION
     Route: 042
     Dates: start: 20190122

REACTIONS (3)
  - Nephropathy toxic [Unknown]
  - Cerebral haemorrhage [Fatal]
  - Pancytopenia [Unknown]

NARRATIVE: CASE EVENT DATE: 20190121
